FAERS Safety Report 4280490-8 (Version None)
Quarter: 2004Q1

REPORT INFORMATION
  Report Type: 
  Country: None (occurrence: None)
  Receive Date: 20040128
  Receipt Date: 20040128
  Transmission Date: 20041129
  Serious: Yes (Hospitalization)
  Sender: FDA-Public Use
  Company Number: None

PATIENT
  Sex: Male

DRUGS (10)
  1. CLINDAMYCIN [Suspect]
  2. CEFAZOLIN [Suspect]
     Indication: CELLULITIS
     Dates: start: 20031110, end: 20031117
  3. ENOXAPARIN SODIUM [Concomitant]
  4. WARFARIN SODIUM [Concomitant]
  5. RANITIDINE [Concomitant]
  6. LEVOTHYROXINE SODIUM [Concomitant]
  7. CITALOPRAM [Concomitant]
  8. CALCIUM CARBONATE [Concomitant]
  9. CALCITRIOL [Concomitant]
  10. ATENOLOL [Concomitant]

REACTIONS (2)
  - CLOSTRIDIUM COLITIS [None]
  - SEPSIS [None]
